FAERS Safety Report 9477430 (Version 1)
Quarter: 2013Q3

REPORT INFORMATION
  Report Type: Report from Study
  Country: US (occurrence: US)
  Receive Date: 20130826
  Receipt Date: 20130826
  Transmission Date: 20140515
  Serious: Yes (Hospitalization)
  Sender: FDA-Public Use
  Company Number: US-ROCHE-1262000

PATIENT
  Age: 47 Year
  Sex: Male

DRUGS (16)
  1. XOLAIR [Suspect]
     Indication: PRODUCT USED FOR UNKNOWN INDICATION
     Route: 065
     Dates: start: 20130809
  2. CELLCEPT [Suspect]
     Indication: RENAL TRANSPLANT
     Dosage: SINCE SURGERY
     Route: 048
     Dates: start: 200605
  3. ADVAIR DISKUS [Concomitant]
     Dosage: REPORTED DRUG : ADVAIR DISCUSS 500/50?1 PUFF TWICE IN A DAY.
     Route: 065
     Dates: start: 20130809
  4. ALBUTEROL [Concomitant]
     Dosage: REPORTED DRUG: ALBUTEROL HFA?2 PUFFS Q4-6 AS REQUIRED (CONCOMITANT MEDICATION AS OF 09A)
     Route: 065
  5. ALBUTEROL NEBULIZER [Concomitant]
     Dosage: REPORTED DRUG: ALBUTEROL NEBULIZER SOLUTION 0.83%?1 VIAL EVERY  4-6 HOURS AS REQUIRED VIA NEBULIZER
     Route: 065
  6. BABY ASPIRIN [Concomitant]
     Dosage: 1 TABLET PO QAM
     Route: 048
  7. HUMALOG INSULIN [Concomitant]
     Dosage: REPORTED DRUG: HUMALOG INSULIN PUMP ?DAILY
     Route: 065
  8. TRANDATE [Concomitant]
     Dosage: REPORTED DRUG: LABETALOL.?1 TABLET TWICE A DAY (CONCOMITANT MEDICATION ON 09AUG2013)
     Route: 065
  9. NASONEX [Concomitant]
     Dosage: REPORTED DRUG:  NASONEX 50 MCG/ACTUATION.?2 SPRAYS EACH NOSTRIL AT NIGHT
     Route: 065
  10. NORVASC [Concomitant]
     Dosage: 1 TAB EVERY AM
     Route: 048
  11. PREDNISONE [Concomitant]
     Dosage: 4 TAB EVERY DAY FOR 4 DAYS, 1 TAB A DAY FOR 3 DAYS.
     Route: 065
  12. SIMVASTATIN [Concomitant]
     Dosage: 1 TAB EVERY DAY
     Route: 065
  13. SINGULAIR [Concomitant]
     Route: 048
  14. BETALOL [Concomitant]
  15. CELEXA (UNITED STATES) [Concomitant]
  16. PROGRAF [Concomitant]
     Dosage: 1 TAB TWICE IN DAY.
     Route: 065

REACTIONS (15)
  - Chest discomfort [Recovering/Resolving]
  - Dyspnoea [Recovering/Resolving]
  - Speech disorder [Recovering/Resolving]
  - Dyspnoea [Recovering/Resolving]
  - Dyspnoea [Unknown]
  - Wheezing [Unknown]
  - Nasal congestion [Unknown]
  - Hyposmia [Unknown]
  - Nasal polyps [Unknown]
  - Upper-airway cough syndrome [Unknown]
  - Cough [Unknown]
  - Breath sounds abnormal [Unknown]
  - Obstructive airways disorder [Unknown]
  - Forced expiratory volume decreased [Recovering/Resolving]
  - Rhinitis allergic [Unknown]
